FAERS Safety Report 6325194-2 (Version None)
Quarter: 2009Q3

REPORT INFORMATION
  Report Type: 
  Country: None (occurrence: None)
  Receive Date: 20090824
  Receipt Date: 20090629
  Transmission Date: 20100115
  Serious: No
  Sender: FDA-Public Use
  Company Number: US-ABBOTT-09P-163-0582886-00

PATIENT
  Sex: Female
  Weight: 71.732 kg

DRUGS (1)
  1. NIASPAN [Suspect]
     Indication: HIGH DENSITY LIPOPROTEIN DECREASED
     Dosage: NOT SURE OF STRENGTH
     Route: 048
     Dates: start: 20090501

REACTIONS (2)
  - GAIT DISTURBANCE [None]
  - MYALGIA [None]
